FAERS Safety Report 17087294 (Version 1)
Quarter: 2019Q4

REPORT INFORMATION
  Report Type: Spontaneous
  Country: CN (occurrence: CN)
  Receive Date: 20191128
  Receipt Date: 20191128
  Transmission Date: 20200122
  Serious: Yes (Hospitalization, Other)
  Sender: FDA-Public Use
  Company Number: CN-ROCHE-2476591

PATIENT
  Age: 57 Year
  Sex: Female
  Weight: 44.7 kg

DRUGS (6)
  1. DEXAMETHASONE SODIUM PHOSPHATE. [Suspect]
     Active Substance: DEXAMETHASONE SODIUM PHOSPHATE
     Route: 042
     Dates: start: 20191102
  2. DEXAMETHASONE SODIUM PHOSPHATE. [Suspect]
     Active Substance: DEXAMETHASONE SODIUM PHOSPHATE
     Indication: NODAL MARGINAL ZONE B-CELL LYMPHOMA
     Route: 042
     Dates: start: 20191101
  3. GEMCITABINE HYDROCHLORIDE. [Suspect]
     Active Substance: GEMCITABINE HYDROCHLORIDE
     Indication: NODAL MARGINAL ZONE B-CELL LYMPHOMA
     Dosage: ONCE
     Route: 041
     Dates: start: 20191102
  4. GEMCITABINE HYDROCHLORIDE. [Suspect]
     Active Substance: GEMCITABINE HYDROCHLORIDE
     Dosage: ONCE
     Route: 041
     Dates: start: 20191109
  5. RITUXAN [Suspect]
     Active Substance: RITUXIMAB
     Indication: NODAL MARGINAL ZONE B-CELL LYMPHOMA
     Dosage: ONCE
     Route: 041
     Dates: start: 20191101
  6. CISPLATIN. [Suspect]
     Active Substance: CISPLATIN
     Indication: NODAL MARGINAL ZONE B-CELL LYMPHOMA
     Route: 041
     Dates: start: 20191102

REACTIONS (3)
  - White blood cell count decreased [Recovering/Resolving]
  - Agranulocytosis [Recovering/Resolving]
  - Bone marrow failure [Unknown]

NARRATIVE: CASE EVENT DATE: 20191105
